FAERS Safety Report 25973423 (Version 1)
Quarter: 2025Q4

REPORT INFORMATION
  Report Type: Spontaneous
  Country: US (occurrence: US)
  Receive Date: 20251029
  Receipt Date: 20251029
  Transmission Date: 20260117
  Serious: Yes (Other)
  Sender: EDENBRIDGE PHARMACEUTICALS
  Company Number: US-EDENBRIDGE PHARMACEUTICALS, LLC-US-2024EDE000046

PATIENT
  Age: 85 Year
  Sex: Female

DRUGS (1)
  1. METHENAMINE MANDELATE [Suspect]
     Active Substance: METHENAMINE MANDELATE
     Indication: Urinary tract infection
     Dosage: 500 MG, TWICE A DAY
     Route: 065
     Dates: end: 202401

REACTIONS (5)
  - Angiopathy [Unknown]
  - Cardiac operation [Unknown]
  - Unevaluable event [Unknown]
  - Product availability issue [Unknown]
  - Therapy interrupted [Unknown]

NARRATIVE: CASE EVENT DATE: 20240101
